FAERS Safety Report 15704231 (Version 1)
Quarter: 2018Q4

REPORT INFORMATION
  Report Type: Spontaneous
  Country: US (occurrence: US)
  Receive Date: 20181210
  Receipt Date: 20181210
  Transmission Date: 20190205
  Serious: Yes (Other)
  Sender: FDA-Public Use
  Company Number: US-GLAXOSMITHKLINE-US2018GSK214715

PATIENT
  Age: 49 Year
  Sex: Female

DRUGS (2)
  1. CHLOROQUINE. [Suspect]
     Active Substance: CHLOROQUINE
     Indication: PRODUCT USED FOR UNKNOWN INDICATION
  2. BENLYSTA [Suspect]
     Active Substance: BELIMUMAB
     Indication: SYSTEMIC LUPUS ERYTHEMATOSUS

REACTIONS (10)
  - Cataract [Unknown]
  - Pruritus [Unknown]
  - Halo vision [Unknown]
  - Rash [Unknown]
  - Drug ineffective [Unknown]
  - Pain [Unknown]
  - Aura [Unknown]
  - Depression [Unknown]
  - Anxiety [Unknown]
  - Dry skin [Unknown]
